FAERS Safety Report 7710505-3 (Version None)
Quarter: 2011Q3

REPORT INFORMATION
  Report Type: 
  Country: None (occurrence: None)
  Receive Date: 20110825
  Receipt Date: 20110818
  Transmission Date: 20111222
  Serious: Yes (Death, Other)
  Sender: FDA-Public Use
  Company Number: US-PFIZER INC-2007034998

PATIENT
  Sex: Male

DRUGS (2)
  1. PROVIGIL [Concomitant]
     Dosage: 200 MG, 1X/DAY
     Dates: start: 20040121, end: 20040402
  2. NEURONTIN [Suspect]
     Dosage: 100 MG, 3X/DAY
     Route: 065
     Dates: start: 20040124, end: 20040322

REACTIONS (4)
  - DEPRESSION [None]
  - COMPLETED SUICIDE [None]
  - ANXIETY [None]
  - DRUG INEFFECTIVE [None]
